FAERS Safety Report 7592006-9 (Version None)
Quarter: 2011Q2

REPORT INFORMATION
  Report Type: 
  Country: None (occurrence: None)
  Receive Date: 20110627
  Receipt Date: 20110613
  Transmission Date: 20111010
  Serious: Yes (Other)
  Sender: FDA-Public Use
  Company Number: 2011MA007145

PATIENT
  Age: 42 Year
  Sex: Male

DRUGS (8)
  1. PROPRANOLOL [Concomitant]
  2. TRAMADOL HYDROCHLORIDE [Suspect]
     Indication: PAIN
  3. LOPERAMIDE [Concomitant]
  4. CODEINE SULFATE [Concomitant]
  5. MORPHINE SULFATE [Concomitant]
  6. ASPIRIN [Concomitant]
  7. OMEPRAZOLE [Concomitant]
  8. FLUOXETINE [Concomitant]

REACTIONS (4)
  - BLOOD TESTOSTERONE DECREASED [None]
  - SECONDARY HYPOGONADISM [None]
  - BLOOD LUTEINISING HORMONE DECREASED [None]
  - BLOOD FOLLICLE STIMULATING HORMONE DECREASED [None]
